FAERS Safety Report 15127445 (Version 1)
Quarter: 2018Q3

REPORT INFORMATION
  Report Type: Spontaneous
  Country: JP (occurrence: JP)
  Receive Date: 20180710
  Receipt Date: 20180710
  Transmission Date: 20181010
  Serious: Yes (Hospitalization)
  Sender: FDA-Public Use
  Company Number: JP-BRACCO-2018JP03342

PATIENT
  Age: 57 Year
  Sex: Female

DRUGS (8)
  1. TOLVAPTAN [Concomitant]
     Active Substance: TOLVAPTAN
     Dosage: DAILY DOSE 1 DF
     Route: 048
     Dates: start: 201702
  2. SPIRONOLACTONE. [Concomitant]
     Active Substance: SPIRONOLACTONE
     Dosage: DAILY DOSE 2 DF
     Dates: start: 201507
  3. FUROSEMIDE. [Concomitant]
     Active Substance: FUROSEMIDE
     Dosage: DAILY DOSE 1 DF
     Dates: start: 20180122
  4. L CARTIN [Concomitant]
     Active Substance: LEVOCARNITINE HYDROCHLORIDE
     Dosage: DAILY DOSE 3 DF
     Dates: start: 20180413
  5. URSODEOXYCHOLIC ACID [Concomitant]
     Active Substance: URSODIOL
     Dosage: DAILY DOSE 600 MG
     Route: 048
     Dates: start: 20150210
  6. ARTIST [Concomitant]
     Active Substance: CARVEDILOL
     Dosage: DAILY DOSE 1 DF
     Route: 048
     Dates: start: 20150210
  7. RABEPRAZOLE [Concomitant]
     Active Substance: RABEPRAZOLE
     Dosage: DAILY DOSE 10 MG
     Route: 048
     Dates: start: 201507
  8. IOPAMIRON [Suspect]
     Active Substance: IOPAMIDOL
     Indication: COMPUTERISED TOMOGRAM
     Dosage: 91 ML, SINGLE
     Route: 040
     Dates: start: 20180622, end: 20180622

REACTIONS (3)
  - Anaphylactic shock [Recovering/Resolving]
  - Pyrexia [Unknown]
  - Rib fracture [Unknown]

NARRATIVE: CASE EVENT DATE: 20180622
